FAERS Safety Report 5019279-0 (Version None)
Quarter: 2006Q2

REPORT INFORMATION
  Report Type: 
  Country: None (occurrence: None)
  Receive Date: 20060531
  Receipt Date: 20060519
  Transmission Date: 20061013
  Serious: Yes (Hospitalization)
  Sender: FDA-Public Use
  Company Number: BR-2006-012449

PATIENT
  Age: 22 Year
  Sex: Female

DRUGS (2)
  1. YASMIN [Suspect]
     Dosage: 1 TAB(S), ORAL
     Route: 048
     Dates: start: 20040201, end: 20050801
  2. ANTIBIOTICS [Concomitant]

REACTIONS (5)
  - ANTEPARTUM HAEMORRHAGE [None]
  - DRUG DOSE OMISSION [None]
  - INAPPROPRIATE SCHEDULE OF DRUG ADMINISTRATION [None]
  - NORMAL NEWBORN [None]
  - PREGNANCY ON ORAL CONTRACEPTIVE [None]
